FAERS Safety Report 17170713 (Version 2)
Quarter: 2020Q1

REPORT INFORMATION
  Report Type: Spontaneous
  Country: CH (occurrence: CH)
  Receive Date: 20191218
  Receipt Date: 20200121
  Transmission Date: 20200409
  Serious: Yes (Death, Other)
  Sender: FDA-Public Use
  Company Number: CH-AMGEN-CHESP2019208698

PATIENT
  Age: 80 Year
  Sex: Male

DRUGS (4)
  1. TRASTUZUMAB. [Suspect]
     Active Substance: TRASTUZUMAB
     Dosage: 300 MILLIGRAM, Q3WK
     Route: 042
     Dates: end: 20181128
  2. CARBOPLATIN. [Suspect]
     Active Substance: CARBOPLATIN
     Indication: EXTRAMAMMARY PAGET^S DISEASE
     Dosage: 300 MILLIGRAM, Q3WK
     Dates: start: 20180424
  3. CARBOPLATIN. [Suspect]
     Active Substance: CARBOPLATIN
     Dosage: 440 MILLIGRAM, Q3WK
     Dates: end: 20181127
  4. TRASTUZUMAB. [Suspect]
     Active Substance: TRASTUZUMAB
     Indication: EXTRAMAMMARY PAGET^S DISEASE
     Dosage: 6 MILLIGRAM/KILOGRAM
     Route: 042
     Dates: start: 20180329

REACTIONS (4)
  - Drug resistance [Fatal]
  - Off label use [Unknown]
  - Pneumonia [Fatal]
  - Extramammary Paget^s disease [Unknown]

NARRATIVE: CASE EVENT DATE: 201810
